FAERS Safety Report 24273483 (Version 1)
Quarter: 2024Q3

REPORT INFORMATION
  Report Type: Report from Study
  Country: BR (occurrence: BR)
  Receive Date: 20240902
  Receipt Date: 20240902
  Transmission Date: 20241017
  Serious: Yes (Death, Life-Threatening, Other)
  Sender: UCB
  Company Number: BR-UCBSA-2024042323

PATIENT
  Sex: Female

DRUGS (1)
  1. CERTOLIZUMAB PEGOL [Suspect]
     Active Substance: CERTOLIZUMAB PEGOL
     Indication: Rheumatoid arthritis
     Dosage: UNK

REACTIONS (3)
  - Cardiovascular disorder [Fatal]
  - Pneumonia [Unknown]
  - Renal disorder [Unknown]
